FAERS Safety Report 7971528-2 (Version None)
Quarter: 2011Q4

REPORT INFORMATION
  Report Type: 
  Country: None (occurrence: None)
  Receive Date: 20111212
  Receipt Date: 20111129
  Transmission Date: 20120403
  Serious: Yes (Other)
  Sender: FDA-Public Use
  Company Number: US-ELI_LILLY_AND_COMPANY-US201111008965

PATIENT
  Sex: Female

DRUGS (7)
  1. CYMBALTA [Suspect]
     Dosage: 30 MG, QD
  2. CLONAZEPAM [Concomitant]
  3. CYMBALTA [Suspect]
     Dosage: 30 MG, EVERY THIRD DAY
  4. LAMICTAL [Concomitant]
  5. CYMBALTA [Suspect]
     Indication: DEPRESSION
     Dosage: 60 MG, QD
  6. CYMBALTA [Suspect]
     Dosage: 30 MG, QOD
  7. CYMBALTA [Suspect]
     Dosage: 30 MG, QD

REACTIONS (9)
  - WRONG TECHNIQUE IN DRUG USAGE PROCESS [None]
  - ANGER [None]
  - INTENTIONAL DRUG MISUSE [None]
  - DIZZINESS [None]
  - MENTAL DISORDER [None]
  - ADVERSE EVENT [None]
  - PARAESTHESIA [None]
  - SUICIDAL BEHAVIOUR [None]
  - DRUG WITHDRAWAL SYNDROME [None]
